FAERS Safety Report 13483581 (Version 2)
Quarter: 2017Q2

REPORT INFORMATION
  Report Type: Spontaneous
  Country: US (occurrence: US)
  Receive Date: 20170426
  Receipt Date: 20170513
  Transmission Date: 20170830
  Serious: Yes (Hospitalization, Other)
  Sender: FDA-Public Use
  Company Number: US-ACCORD-050703

PATIENT
  Age: 64 Year
  Sex: Male

DRUGS (1)
  1. ITRACONAZOLE. [Suspect]
     Active Substance: ITRACONAZOLE
     Indication: CELLULITIS

REACTIONS (2)
  - Cardiotoxicity [Recovered/Resolved]
  - Acute left ventricular failure [Recovering/Resolving]
